FAERS Safety Report 9267210 (Version 2)
Quarter: 2013Q3

REPORT INFORMATION
  Report Type: Spontaneous
  Country: JP (occurrence: JP)
  Receive Date: 20130502
  Receipt Date: 20130705
  Transmission Date: 20140515
  Serious: Yes (Other)
  Sender: FDA-Public Use
  Company Number: PHHY2013JP041581

PATIENT
  Sex: Female

DRUGS (5)
  1. COMTAN [Suspect]
     Indication: PARKINSON^S DISEASE
     Dosage: UNK UKN, UNK
     Route: 048
  2. LENDORMIN [Suspect]
     Dosage: 0.25 MG, DAILY
     Route: 048
     Dates: end: 201305
  3. FP [Concomitant]
     Dosage: 7.5 MG, UNK
     Route: 048
  4. BI SIFROL [Concomitant]
     Dosage: 1.5 MG, UNK
     Route: 048
  5. EVISTA [Concomitant]
     Dosage: 60 MG, UNK
     Route: 048

REACTIONS (2)
  - Pancytopenia [Recovered/Resolved]
  - Anaemia [Unknown]
